FAERS Safety Report 11926934 (Version 1)
Quarter: 2016Q1

REPORT INFORMATION
  Report Type: Spontaneous
  Country: DE (occurrence: DE)
  Receive Date: 20160119
  Receipt Date: 20160119
  Transmission Date: 20160526
  Serious: Yes (Other)
  Sender: FDA-Public Use
  Company Number: DE-WATSON-2015-28227

PATIENT
  Age: 40 Year
  Sex: Male

DRUGS (1)
  1. DISULFIRAM. [Suspect]
     Active Substance: DISULFIRAM
     Indication: ALCOHOL ABUSE
     Dosage: 400 MG, BID
     Route: 048
     Dates: start: 20151212

REACTIONS (12)
  - Movement disorder [Unknown]
  - Headache [Unknown]
  - Fatigue [Unknown]
  - Asthenia [Unknown]
  - Coordination abnormal [Unknown]
  - Speech disorder [Unknown]
  - Vomiting [Unknown]
  - Pallor [Unknown]
  - Malaise [Unknown]
  - Overdose [Unknown]
  - Visual impairment [Unknown]
  - Hangover [Unknown]

NARRATIVE: CASE EVENT DATE: 20151212
